FAERS Safety Report 8032739-3 (Version None)
Quarter: 2012Q1

REPORT INFORMATION
  Report Type: 
  Country: None (occurrence: None)
  Receive Date: 20120110
  Receipt Date: 20111228
  Transmission Date: 20120608
  Serious: Yes (Hospitalization)
  Sender: FDA-Public Use
  Company Number: FR-UCBSA-048393

PATIENT
  Age: 82 Year
  Sex: Female

DRUGS (6)
  1. PRAVASTATINE SODIUM [Concomitant]
     Dosage: UNKNOWN DOSE
     Route: 048
  2. PERINDOPRIL ERBUMINE [Concomitant]
     Route: 048
     Dates: start: 20111027
  3. NICARDIPINE HCL [Concomitant]
     Route: 048
     Dates: start: 20111027
  4. KEPPRA [Suspect]
     Indication: EPILEPSY
     Route: 042
     Dates: start: 20111028, end: 20111103
  5. ASPIRIN [Concomitant]
     Dosage: UNKNOWN DOSE
     Route: 048
  6. CLONAZEPAM [Concomitant]
     Route: 048
     Dates: start: 20111027

REACTIONS (4)
  - HALLUCINATIONS, MIXED [None]
  - ABNORMAL BEHAVIOUR [None]
  - DELUSION [None]
  - DELIRIUM [None]
